FAERS Safety Report 8177534-X (Version None)
Quarter: 2012Q1

REPORT INFORMATION
  Report Type: 
  Country: None (occurrence: None)
  Receive Date: 20120301
  Receipt Date: 20120224
  Transmission Date: 20120608
  Serious: Yes (Life-Threatening, Hospitalization, Other)
  Sender: FDA-Public Use
  Company Number: US-ACTELION-A-NJ2012-61155

PATIENT

DRUGS (11)
  1. POTASSIUM CHLORIDE [Concomitant]
  2. VENTAVIS [Suspect]
     Dosage: UNK
     Route: 055
     Dates: start: 20120127
  3. LETAIRIS [Concomitant]
  4. CRESTOR [Concomitant]
  5. SYMBICOCT [Concomitant]
  6. VENTAVIS [Suspect]
     Indication: PULMONARY ARTERIAL HYPERTENSION
     Dosage: UNK
     Route: 055
     Dates: start: 20110303, end: 20120120
  7. PREDNISONE [Concomitant]
  8. PROTONIX [Concomitant]
  9. PLAVIX [Concomitant]
  10. ASPIRIN [Concomitant]
  11. LASIX [Concomitant]

REACTIONS (7)
  - PRODUCTIVE COUGH [None]
  - ACUTE RESPIRATORY DISTRESS SYNDROME [None]
  - ENDOTRACHEAL INTUBATION [None]
  - HAEMOPTYSIS [None]
  - CHEST PAIN [None]
  - RESPIRATORY FAILURE [None]
  - PNEUMONIA [None]
